FAERS Safety Report 10264650 (Version 1)
Quarter: 2014Q2

REPORT INFORMATION
  Report Type: Report from Study
  Country: US (occurrence: US)
  Receive Date: 20140627
  Receipt Date: 20140627
  Transmission Date: 20141212
  Serious: Yes (Death)
  Sender: FDA-Public Use
  Company Number: US-ASTRAZENECA-2014SE46894

PATIENT
  Age: 23458 Day
  Sex: Female

DRUGS (1)
  1. SYMBICORT [Suspect]
     Dosage: TWO PUFFS TWO TIMES DAILY
     Route: 055

REACTIONS (1)
  - Death [Fatal]
